FAERS Safety Report 4551440-1 (Version None)
Quarter: 2005Q1

REPORT INFORMATION
  Report Type: 
  Country: None (occurrence: None)
  Receive Date: 20050110
  Receipt Date: 20041206
  Transmission Date: 20050727
  Serious: No
  Sender: FDA-Public Use
  Company Number: 9421

PATIENT
  Age: 58 Year
  Sex: Female

DRUGS (6)
  1. CARBOPLATIN [Suspect]
     Indication: NON-SMALL CELL LUNG CANCER
     Dosage: IV
     Route: 042
     Dates: start: 20041117, end: 20041117
  2. DEXAMETHASONE [Concomitant]
  3. LANSOPRAZOLE [Concomitant]
  4. IBUPROFEN [Concomitant]
  5. PROCHLORPERAZINE [Concomitant]
  6. CODEINE/PARACETAMOL [Concomitant]

REACTIONS (2)
  - DYSPNOEA [None]
  - PALLOR [None]
